FAERS Safety Report 8544562-1 (Version None)
Quarter: 2012Q3

REPORT INFORMATION
  Report Type: 
  Country: None (occurrence: None)
  Receive Date: 20120727
  Receipt Date: 20120718
  Transmission Date: 20120928
  Serious: Yes (Hospitalization, Other)
  Sender: FDA-Public Use
  Company Number: US-ABBOTT-12P-163-0957795-00

PATIENT
  Sex: Male
  Weight: 107.14 kg

DRUGS (1)
  1. HUMIRA [Suspect]
     Indication: CROHN'S DISEASE
     Dates: start: 20070101

REACTIONS (4)
  - CHEST PAIN [None]
  - BACK PAIN [None]
  - DYSPNOEA [None]
  - CORONARY ARTERY OCCLUSION [None]
